FAERS Safety Report 8505443-2 (Version None)
Quarter: 2012Q3

REPORT INFORMATION
  Report Type: 
  Country: None (occurrence: None)
  Receive Date: 20120712
  Receipt Date: 20120705
  Transmission Date: 20120928
  Serious: Yes (Other)
  Sender: FDA-Public Use
  Company Number: JP-PFIZER INC-2012056180

PATIENT
  Age: 70 Year
  Sex: Male
  Weight: 54 kg

DRUGS (7)
  1. ALOXI [Concomitant]
     Dosage: 0.75 MG, 1X/DAY
     Route: 041
     Dates: start: 20111226, end: 20120207
  2. CISPLATIN [Suspect]
     Indication: LUNG NEOPLASM MALIGNANT
     Dosage: 110 MG, CYCLIC
     Route: 041
     Dates: start: 20111226, end: 20120207
  3. ASPARA K [Concomitant]
     Dosage: 10 MEQ, 2X/DAY
     Route: 041
     Dates: start: 20111226, end: 20120207
  4. ALIMTA [Concomitant]
     Dosage: 780 MG, 1X/DAY
     Route: 041
     Dates: start: 20111226, end: 20120228
  5. MAGNESIUM SULFATE [Concomitant]
     Dosage: 20 MEQ, 2X/DAY
     Route: 041
     Dates: start: 20111226, end: 20120207
  6. MANNIGEN [Concomitant]
     Dosage: 200 ML, 1X/DAY
     Route: 041
     Dates: start: 20111226, end: 20120207
  7. DEXAMETHASONE SODIUM PHOSPHATE [Concomitant]
     Dosage: 9.9 MG, 1X/DAY
     Route: 041
     Dates: start: 20111226, end: 20120228

REACTIONS (2)
  - DYSPNOEA [None]
  - LOSS OF CONSCIOUSNESS [None]
